FAERS Safety Report 6636900-1 (Version None)
Quarter: 2010Q1

REPORT INFORMATION
  Report Type: 
  Country: None (occurrence: None)
  Receive Date: 20100316
  Receipt Date: 20100308
  Transmission Date: 20100710
  Serious: Yes (Other)
  Sender: FDA-Public Use
  Company Number: PHHY2010FR14049

PATIENT
  Age: 75 Year
  Sex: Male

DRUGS (3)
  1. RASILEZ [Suspect]
     Dosage: 150 MG, UNK
     Dates: start: 20100304
  2. TAHOR [Concomitant]
  3. PERMIXON [Concomitant]

REACTIONS (1)
  - PURPURA [None]
